FAERS Safety Report 24213099 (Version 2)
Quarter: 2024Q3

REPORT INFORMATION
  Report Type: Spontaneous
  Country: PT (occurrence: PT)
  Receive Date: 20240815
  Receipt Date: 20240827
  Transmission Date: 20241017
  Serious: Yes (Hospitalization, Other)
  Sender: ROCHE
  Company Number: None

PATIENT
  Age: 60 Year
  Sex: Female

DRUGS (10)
  1. BEVACIZUMAB [Suspect]
     Active Substance: BEVACIZUMAB
     Indication: Metastases to pleura
     Route: 065
  2. BEVACIZUMAB [Suspect]
     Active Substance: BEVACIZUMAB
     Indication: Serous cystadenocarcinoma ovary
  3. CARBOPLATIN [Suspect]
     Active Substance: CARBOPLATIN
     Indication: Metastases to pleura
     Dosage: UNK
     Route: 065
     Dates: start: 202004
  4. CARBOPLATIN [Suspect]
     Active Substance: CARBOPLATIN
     Indication: Serous cystadenocarcinoma ovary
     Dosage: UNK
     Route: 065
     Dates: start: 202204
  5. GEMCITABINE [Suspect]
     Active Substance: GEMCITABINE
     Indication: Metastases to pleura
     Dosage: UNK
     Route: 065
     Dates: start: 202204
  6. DOXORUBICIN [Suspect]
     Active Substance: DOXORUBICIN
     Indication: Serous cystadenocarcinoma ovary
     Route: 065
  7. DOXORUBICIN [Suspect]
     Active Substance: DOXORUBICIN
     Indication: Metastases to pleura
  8. PACLITAXEL [Suspect]
     Active Substance: PACLITAXEL
     Indication: Metastases to pleura
     Dosage: UNK
     Route: 065
     Dates: start: 202004
  9. AMOXICILLIN\CLAVULANIC ACID [Suspect]
     Active Substance: AMOXICILLIN\CLAVULANIC ACID
     Indication: Lower respiratory tract infection
     Dosage: UNK
     Route: 065
  10. AZITHROMYCIN [Suspect]
     Active Substance: AZITHROMYCIN
     Indication: Lower respiratory tract infection
     Dosage: UNK
     Route: 065

REACTIONS (2)
  - Disease progression [Not Recovered/Not Resolved]
  - Organising pneumonia [Recovering/Resolving]

NARRATIVE: CASE EVENT DATE: 20220401
